FAERS Safety Report 19432960 (Version 1)
Quarter: 2021Q2

REPORT INFORMATION
  Report Type: Report from Study
  Country: NL (occurrence: NL)
  Receive Date: 20210618
  Receipt Date: 20210618
  Transmission Date: 20210717
  Serious: Yes (Other)
  Sender: FDA-Public Use
  Company Number: NL-REGENERON PHARMACEUTICALS, INC.-2021-45249

PATIENT

DRUGS (2)
  1. COVID?19 VACCINE [Concomitant]
     Indication: COVID-19 IMMUNISATION
     Dosage: UNK
     Dates: start: 20210407
  2. PRALUENT [Suspect]
     Active Substance: ALIROCUMAB
     Indication: PRIMARY HYPERCHOLESTEROLAEMIA
     Dosage: 150 MG/ML, QOW
     Route: 058
     Dates: start: 20171128

REACTIONS (4)
  - Injection site bruising [Recovered/Resolved]
  - Injection site haematoma [Unknown]
  - Injection site pain [Unknown]
  - Injection site swelling [Recovered/Resolved]

NARRATIVE: CASE EVENT DATE: 20210418
